FAERS Safety Report 8510288-3 (Version None)
Quarter: 2012Q3

REPORT INFORMATION
  Report Type: 
  Country: None (occurrence: None)
  Receive Date: 20120713
  Receipt Date: 20120703
  Transmission Date: 20120928
  Serious: Yes (Death, Hospitalization)
  Sender: FDA-Public Use
  Company Number: VN-BAXTER-2012BAX010966

PATIENT
  Sex: Female

DRUGS (1)
  1. DIANEAL [Suspect]
     Route: 033
     Dates: start: 20091202

REACTIONS (6)
  - POOR PERSONAL HYGIENE [None]
  - PYREXIA [None]
  - VOMITING [None]
  - DIARRHOEA [None]
  - PERITONITIS BACTERIAL [None]
  - GASTRIC HAEMORRHAGE [None]
